FAERS Safety Report 5360935-2 (Version None)
Quarter: 2007Q2

REPORT INFORMATION
  Report Type: 
  Country: None (occurrence: None)
  Receive Date: 20070530
  Receipt Date: 20070208
  Transmission Date: 20071010
  Serious: No
  Sender: FDA-Public Use
  Company Number: 2007PV029799

PATIENT
  Age: 63 Year
  Sex: Female
  Weight: 97.977 kg

DRUGS (4)
  1. BYETTA [Suspect]
     Indication: DIABETES MELLITUS NON-INSULIN-DEPENDENT
     Dosage: 10 MCG;BID;SC  5 MCG;BID;SC  10 MCG;BID;SC
     Route: 058
     Dates: start: 20061130, end: 20061201
  2. BYETTA [Suspect]
     Indication: DIABETES MELLITUS NON-INSULIN-DEPENDENT
     Dosage: 10 MCG;BID;SC  5 MCG;BID;SC  10 MCG;BID;SC
     Route: 058
     Dates: start: 20061201
  3. BYETTA [Suspect]
     Indication: DIABETES MELLITUS NON-INSULIN-DEPENDENT
     Dosage: 10 MCG;BID;SC  5 MCG;BID;SC  10 MCG;BID;SC
     Route: 058
     Dates: start: 20070101
  4. ASPIRIN [Concomitant]

REACTIONS (3)
  - ALOPECIA [None]
  - INJECTION SITE BRUISING [None]
  - WEIGHT DECREASED [None]
